FAERS Safety Report 4701030-2 (Version None)
Quarter: 2005Q2

REPORT INFORMATION
  Report Type: 
  Country: None (occurrence: None)
  Receive Date: 20050627
  Receipt Date: 20050627
  Transmission Date: 20051028
  Serious: Yes (Other)
  Sender: FDA-Public Use
  Company Number: None

PATIENT
  Age: 85 Year
  Sex: Female
  Weight: 65.7716 kg

DRUGS (2)
  1. NIASPAN [Suspect]
     Indication: BLOOD CHOLESTEROL INCREASED
     Dosage: 1000 MG PO BID  (AM/PM)  ALSO SEE B 5
     Route: 048
     Dates: start: 20040601, end: 20050501
  2. NIASPAN [Suspect]
     Indication: DRUG INTOLERANCE
     Dosage: 1000 MG PO BID  (AM/PM)  ALSO SEE B 5
     Route: 048
     Dates: start: 20040601, end: 20050501

REACTIONS (5)
  - FEELING HOT [None]
  - HEPATIC ENZYME INCREASED [None]
  - PANCREATIC ENZYMES INCREASED [None]
  - RASH [None]
  - VOMITING [None]
